FAERS Safety Report 5526700-8 (Version None)
Quarter: 2007Q4

REPORT INFORMATION
  Report Type: 
  Country: None (occurrence: None)
  Receive Date: 20071127
  Receipt Date: 20071120
  Transmission Date: 20080405
  Serious: Yes (Hospitalization, Other)
  Sender: FDA-Public Use
  Company Number: HQWYE539807JUN07

PATIENT
  Sex: Male
  Weight: 67 kg

DRUGS (4)
  1. GEMTUZUMAB OZOGAMICIN [Suspect]
     Indication: ACUTE MYELOID LEUKAEMIA
     Dosage: 10.5 UNITS UNSPECIFIED
     Route: 042
     Dates: start: 20060307, end: 20060307
  2. ETOPOSIDE [Suspect]
     Indication: ACUTE MYELOID LEUKAEMIA
     Dosage: ACTUAL DOSE GIVEN 175 UNITS AND FREQUENCY UNSPECIFIED (CUMULATIVE DOSE GIVEN 525 UNITS UNSPECIFIED)
     Route: 042
     Dates: start: 20060324, end: 20060326
  3. CYTOSAR [Suspect]
     Indication: ACUTE MYELOID LEUKAEMIA
     Dosage: ACTUAL DOSE GIVEN 175 UNITS AND FREQUENCY UNSPECIFIED (CUMULATIVE DOSE GIVEN 1225 UNITS UNSPECIFIED)
     Route: 042
     Dates: start: 20060324, end: 20060330
  4. MITOXANTRONE HCL [Suspect]
     Indication: ACUTE MYELOID LEUKAEMIA
     Dosage: ACTUAL DOSE GIVEN 12 UNITS AND FREQUENCY UNSPECIFIED (CUMULATIVE DOSE GIVEN 36 UNITS UNSPECIFIED)
     Route: 042
     Dates: start: 20060324, end: 20060328

REACTIONS (3)
  - ESCHERICHIA SEPSIS [None]
  - FOLLICULITIS [None]
  - VASCULITIS [None]
